FAERS Safety Report 8887592 (Version 1)
Quarter: 2012Q4

REPORT INFORMATION
  Report Type: Spontaneous
  Country: US (occurrence: None)
  Receive Date: 20121101
  Receipt Date: 20121101
  Transmission Date: 20130627
  Serious: Yes (Disabling)
  Sender: FDA-Public Use
  Company Number: None

PATIENT
  Age: 75 Year
  Sex: Female
  Weight: 72.58 kg

DRUGS (1)
  1. AMLODIPINE [Suspect]
     Indication: HYPERTENSION
     Dosage: 5mg  Daily  po
     Route: 048
     Dates: start: 20111206, end: 20120923

REACTIONS (9)
  - Vomiting [None]
  - Oedema peripheral [None]
  - Rash [None]
  - Joint swelling [None]
  - Joint swelling [None]
  - Oedema peripheral [None]
  - Pain in extremity [None]
  - Arthralgia [None]
  - Arthropod bite [None]
